FAERS Safety Report 5893596-4 (Version None)
Quarter: 2008Q3

REPORT INFORMATION
  Report Type: 
  Country: None (occurrence: None)
  Receive Date: 20080923
  Receipt Date: 20070911
  Transmission Date: 20090109
  Serious: No
  Sender: FDA-Public Use
  Company Number: US-ASTRAZENECA-2007UW21368

PATIENT
  Age: 86 Year
  Sex: Male
  Weight: 68 kg

DRUGS (7)
  1. SEROQUEL [Suspect]
     Indication: PARKINSON'S DISEASE
     Route: 048
  2. CINAMET [Concomitant]
  3. PLAVIX [Concomitant]
  4. PRAVACHOL [Concomitant]
  5. NORVASC [Concomitant]
  6. LISINOPRIL [Concomitant]
  7. PRILOSEC [Concomitant]

REACTIONS (3)
  - DEPRESSED MOOD [None]
  - PENIS DISORDER [None]
  - SOMNOLENCE [None]
